FAERS Safety Report 7776556-8 (Version None)
Quarter: 2011Q3

REPORT INFORMATION
  Report Type: 
  Country: None (occurrence: None)
  Receive Date: 20110922
  Receipt Date: 20110907
  Transmission Date: 20111222
  Serious: Yes (Other)
  Sender: FDA-Public Use
  Company Number: 2011-385

PATIENT
  Age: 80 Year
  Sex: Male

DRUGS (1)
  1. PRIALT [Suspect]
     Indication: PAIN
     Dosage: 0.21 UG, ONCE/HOUR, INTRATHECAL  UG, ONCE/HOUR, INTRATHECAL
     Route: 037

REACTIONS (2)
  - VERTIGO [None]
  - GASTROINTESTINAL MOTILITY DISORDER [None]
